FAERS Safety Report 5808613-7 (Version None)
Quarter: 2008Q3

REPORT INFORMATION
  Report Type: 
  Country: None (occurrence: None)
  Receive Date: 20080709
  Receipt Date: 20080709
  Transmission Date: 20090109
  Serious: Yes (Hospitalization)
  Sender: FDA-Public Use
  Company Number: None

PATIENT
  Age: 60 Year
  Sex: Male

DRUGS (1)
  1. INSULIN [Suspect]
     Indication: DIABETES MELLITUS
     Dosage: 64 UNITS EVERY DAY SQ
     Route: 058
     Dates: start: 20070114

REACTIONS (4)
  - HYPERKALAEMIA [None]
  - HYPOGLYCAEMIA [None]
  - REFUSAL OF TREATMENT BY PATIENT [None]
  - TREATMENT NONCOMPLIANCE [None]
